FAERS Safety Report 6857570-3 (Version None)
Quarter: 2010Q3

REPORT INFORMATION
  Report Type: 
  Country: None (occurrence: None)
  Receive Date: 20100719
  Receipt Date: 20080128
  Transmission Date: 20110219
  Serious: No
  Sender: FDA-Public Use
  Company Number: US-PFIZER INC-2008008541

PATIENT
  Sex: Female
  Weight: 79.38 kg

DRUGS (4)
  1. CHANTIX [Suspect]
     Indication: SMOKING CESSATION THERAPY
     Route: 048
     Dates: start: 20080110
  2. AVELOX [Concomitant]
  3. EVISTA [Concomitant]
  4. CRESTOR [Concomitant]

REACTIONS (1)
  - DYSGEUSIA [None]
